FAERS Safety Report 14024976 (Version 1)
Quarter: 2017Q3

REPORT INFORMATION
  Report Type: Spontaneous
  Country: US (occurrence: US)
  Receive Date: 20170929
  Receipt Date: 20170929
  Transmission Date: 20171128
  Serious: No
  Sender: FDA-Public Use
  Company Number: US-BAYER-2017-174233

PATIENT
  Sex: Male

DRUGS (5)
  1. CLARITIN [Suspect]
     Active Substance: LORATADINE
     Indication: PRODUCT USED FOR UNKNOWN INDICATION
     Dosage: FEW TIMES A WEEK
     Route: 065
  2. OMEGA 3 FISH OIL [Concomitant]
     Active Substance: FISH OIL\OMEGA-3 FATTY ACIDS
     Dosage: UNK
  3. CENTRUM [Concomitant]
     Active Substance: VITAMINS
  4. ONE A DAY MEN^S HEALTH [Suspect]
     Active Substance: VITAMINS
     Indication: NUTRITIONAL SUPPLEMENTATION
     Dosage: 1 DF, QD
     Route: 048
     Dates: start: 20170722
  5. SINUSTAB [Concomitant]
     Dosage: UNK UNK, PRN

REACTIONS (1)
  - Tongue discomfort [Recovered/Resolved]
